FAERS Safety Report 7370743-9 (Version None)
Quarter: 2011Q1

REPORT INFORMATION
  Report Type: 
  Country: None (occurrence: None)
  Receive Date: 20110323
  Receipt Date: 20110315
  Transmission Date: 20110831
  Serious: Yes (Hospitalization, Other)
  Sender: FDA-Public Use
  Company Number: FR-BRISTOL-MYERS SQUIBB COMPANY-15616717

PATIENT
  Age: 86 Year
  Sex: Female

DRUGS (19)
  1. UN-ALFA [Concomitant]
     Dosage: 1 SOFT ELASTIC CAPS
     Route: 048
  2. IPRATROPIUM BROMIDE [Concomitant]
     Dosage: INHALATION
     Dates: start: 20101225, end: 20110104
  3. EPREX [Concomitant]
     Dates: start: 20100301
  4. CALCIDIA [Concomitant]
     Dosage: 1 DF = 3 SACHETS 1.54 G
     Route: 048
     Dates: start: 20101227
  5. COUMADIN [Suspect]
     Dosage: 0.5 SCORED TAB
     Route: 048
  6. DAFALGAN CAPS 500 MG [Concomitant]
     Dosage: 1 DF = 8 CAPS
     Route: 048
  7. ZOLPIDEM [Concomitant]
     Dosage: ZOLPIDEM ACTAVIS,1 INTAKE
     Route: 048
  8. NEXIUM [Concomitant]
     Dosage: ENTERIC COATED TAB
     Route: 048
  9. CLAMOXYL [Concomitant]
     Dosage: 1 DF = 3 DISPERSABLE TABS,1 G
     Route: 048
     Dates: start: 20101201
  10. LASIX [Concomitant]
     Dosage: LASILIX SPECIAL 0.5 SCORED TABS
     Route: 048
  11. TAHOR [Concomitant]
     Dosage: FILM-COATED TAB
     Route: 048
  12. CORDARONE [Concomitant]
     Dosage: 1 SCORED TAB
     Route: 048
  13. TARDYFERON B9 [Concomitant]
     Dosage: 1 DF = 1 COATED TAB
     Route: 048
  14. SERESTA [Concomitant]
     Dosage: 1 SCORED TAB
     Route: 048
  15. VENTOLIN [Concomitant]
     Dosage: 1 DF = 5MG/2.5ML
     Dates: start: 20101225, end: 20110104
  16. APROVEL FILM-COATED TABS [Suspect]
     Route: 048
     Dates: start: 20100901, end: 20101228
  17. PLAVIX [Suspect]
     Dosage: FILM COATED TAB
     Route: 048
     Dates: end: 20101228
  18. CARDENSIEL [Concomitant]
     Dosage: FILM-COATED TAB
     Route: 048
  19. BUDESONIDE [Concomitant]
     Dosage: 1 DF = 1MG/2ML INHALATION
     Dates: start: 20101225, end: 20110104

REACTIONS (7)
  - INTERNATIONAL NORMALISED RATIO ABNORMAL [None]
  - ANAEMIA [None]
  - BRONCHITIS [None]
  - HAEMATOMA [None]
  - PLEURAL EFFUSION [None]
  - RENAL IMPAIRMENT [None]
  - CONTUSION [None]
